FAERS Safety Report 8292181-7 (Version None)
Quarter: 2012Q2

REPORT INFORMATION
  Report Type: 
  Country: None (occurrence: None)
  Receive Date: 20120417
  Receipt Date: 20120409
  Transmission Date: 20120825
  Serious: Yes (Other)
  Sender: FDA-Public Use
  Company Number: US-AMGEN-USASP2012013630

PATIENT
  Age: 32 Year
  Sex: Female

DRUGS (4)
  1. ENBREL [Suspect]
     Indication: PSORIATIC ARTHROPATHY
     Dosage: 50 MG, 2 TIMES/WK
     Dates: start: 20110829, end: 20120126
  2. LOESTRIN 1.5/30 [Concomitant]
     Dosage: UNK
     Route: 048
  3. ENBREL [Suspect]
     Dosage: 50 MG, QWK
     Dates: start: 20110909, end: 20120114
  4. ADDERALL 5 [Concomitant]
     Dosage: UNK
     Route: 048

REACTIONS (7)
  - MEMORY IMPAIRMENT [None]
  - FATIGUE [None]
  - SINUSITIS [None]
  - NECK PAIN [None]
  - NAUSEA [None]
  - LYMPHADENOPATHY [None]
  - HEADACHE [None]
